FAERS Safety Report 8991805 (Version 1)
Quarter: 2012Q4

REPORT INFORMATION
  Report Type: 
  Country: US (occurrence: US)
  Receive Date: 20121231
  Receipt Date: 20121231
  Transmission Date: 20130627
  Serious: Yes (Other)
  Sender: FDA-Public Use
  Company Number: US-JNJFOC-20121211220

PATIENT

DRUGS (2)
  1. INFLIXIMAB, RECOMBINANT [Suspect]
     Indication: COLITIS ULCERATIVE
     Dosage: at 0, 2 and 6 weeks
     Route: 042
  2. AZATHIOPRINE [Concomitant]
     Route: 065

REACTIONS (3)
  - Treatment failure [Unknown]
  - Adverse event [Unknown]
  - Infection [Unknown]
